FAERS Safety Report 5710874-X (Version None)
Quarter: 2008Q2

REPORT INFORMATION
  Report Type: 
  Country: None (occurrence: None)
  Receive Date: 20080421
  Receipt Date: 20080411
  Transmission Date: 20081010
  Serious: Yes (Other)
  Sender: FDA-Public Use
  Company Number: PHHY2008AU01960

PATIENT
  Age: 13 Year
  Sex: Male

DRUGS (2)
  1. RITALIN [Suspect]
     Dosage: 10 MG, BID
     Dates: start: 20080101, end: 20080220
  2. VALPROIC ACID [Concomitant]
     Indication: EPILEPSY

REACTIONS (18)
  - BODY TEMPERATURE INCREASED [None]
  - COLD SWEAT [None]
  - COMA [None]
  - CONFUSIONAL STATE [None]
  - DYSKINESIA [None]
  - EYE PAIN [None]
  - FORMICATION [None]
  - HALLUCINATION [None]
  - HALLUCINATION, VISUAL [None]
  - HEADACHE [None]
  - HEART RATE INCREASED [None]
  - HYPERHIDROSIS [None]
  - INAPPROPRIATE AFFECT [None]
  - LIP SWELLING [None]
  - MUSCLE TWITCHING [None]
  - PALLOR [None]
  - SWELLING FACE [None]
  - VISION BLURRED [None]
